FAERS Safety Report 14298394 (Version 1)
Quarter: 2017Q4

REPORT INFORMATION
  Report Type: Spontaneous
  Country: US (occurrence: US)
  Receive Date: 20171215
  Receipt Date: 20171215
  Transmission Date: 20180321
  Serious: Yes (Hospitalization)
  Sender: FDA-Public Use
  Company Number: None

PATIENT
  Age: 24 Year
  Sex: Male
  Weight: 76.5 kg

DRUGS (8)
  1. ZYRTEC [Concomitant]
     Active Substance: CETIRIZINE HYDROCHLORIDE
  2. BIOTIN [Concomitant]
     Active Substance: BIOTIN
  3. MULTIVITAMINS [Concomitant]
     Active Substance: VITAMINS
  4. DUPILUMAB [Concomitant]
     Active Substance: DUPILUMAB
  5. XYZAL [Concomitant]
     Active Substance: LEVOCETIRIZINE DIHYDROCHLORIDE
  6. VITAMIN D3 [Concomitant]
     Active Substance: CHOLECALCIFEROL
  7. TRIAMCINOLONE 0.1 [Suspect]
     Active Substance: TRIAMCINOLONE
     Indication: ECZEMA
     Route: 061
  8. HYALURONIC ACID [Concomitant]
     Active Substance: HYALURONIC ACID

REACTIONS (3)
  - Skin disorder [None]
  - Infection [None]
  - Skin fissures [None]

NARRATIVE: CASE EVENT DATE: 20160214
